FAERS Safety Report 12979537 (Version 2)
Quarter: 2017Q1

REPORT INFORMATION
  Report Type: Spontaneous
  Country: GB (occurrence: GB)
  Receive Date: 20161128
  Receipt Date: 20170201
  Transmission Date: 20170428
  Serious: Yes (Hospitalization)
  Sender: FDA-Public Use
  Company Number: GB-NOVOPROD-519979

PATIENT
  Age: 83 Year
  Sex: Female

DRUGS (2)
  1. NOVOMIX 30 FLEXPEN [Suspect]
     Active Substance: INSULIN ASPART
     Dosage: 26 U, QD (20U IN THE MORNING AND 6U IN THE EVENING)
     Route: 065
  2. NOVOMIX 30 FLEXPEN [Suspect]
     Active Substance: INSULIN ASPART
     Indication: TYPE 1 DIABETES MELLITUS
     Dosage: 32-36U QD (22U IN THE MORNING AND 10-14U IN THE EVENING)
     Route: 065

REACTIONS (6)
  - Incorrect dose administered [Unknown]
  - Cerebrovascular accident [Not Recovered/Not Resolved]
  - Blood glucose fluctuation [Unknown]
  - Blood glucose fluctuation [Not Recovered/Not Resolved]
  - Pneumonia [Not Recovered/Not Resolved]
  - Product preparation error [Unknown]
